FAERS Safety Report 9071196 (Version 1)
Quarter: 2013Q1

REPORT INFORMATION
  Report Type: Spontaneous
  Country: US (occurrence: US)
  Receive Date: 20130206
  Receipt Date: 20130206
  Transmission Date: 20140127
  Serious: No
  Sender: FDA-Public Use
  Company Number: US-ALLERGAN-1209666US

PATIENT
  Age: 66 Year
  Sex: Male

DRUGS (4)
  1. RESTASIS? [Suspect]
     Indication: DRY EYE
     Dosage: 2 GTT, UNK
     Route: 047
     Dates: start: 201105
  2. SINTEC                             /00574902/ [Concomitant]
     Indication: DRY EYE
  3. REFRESH TEARS [Concomitant]
     Indication: DRY EYE
     Dosage: UNK
     Route: 047
  4. EPIDURAL INJECTIONS [Concomitant]
     Indication: SPINAL COLUMN STENOSIS

REACTIONS (1)
  - Vision blurred [Not Recovered/Not Resolved]
